FAERS Safety Report 6083581-4 (Version None)
Quarter: 2009Q1

REPORT INFORMATION
  Report Type: 
  Country: None (occurrence: None)
  Receive Date: 20090219
  Receipt Date: 20090210
  Transmission Date: 20090719
  Serious: Yes (Hospitalization, Other)
  Sender: FDA-Public Use
  Company Number: PHHO2008DE12146

PATIENT
  Sex: Male
  Weight: 80 kg

DRUGS (4)
  1. ICL670A ICL+ [Suspect]
     Indication: IRON OVERLOAD
     Dosage: 1625 MG, DAILY
     Route: 048
     Dates: start: 20080425, end: 20081114
  2. IBUPROFEN TABLETS [Concomitant]
     Indication: PAIN
  3. RAMIPRIL [Concomitant]
     Indication: HYPERTENSION
  4. AMLODIPINE [Concomitant]

REACTIONS (15)
  - BLISTER [None]
  - DEBRIDEMENT [None]
  - HAEMATOMA [None]
  - HYPERSENSITIVITY [None]
  - HYPOTENSION [None]
  - JOINT RANGE OF MOTION DECREASED [None]
  - MUSCULOSKELETAL PAIN [None]
  - PRURITUS [None]
  - RASH [None]
  - ROTATOR CUFF REPAIR [None]
  - ROTATOR CUFF SYNDROME [None]
  - SHOULDER ARTHROPLASTY [None]
  - SYNOVIAL DISORDER [None]
  - SYNOVITIS [None]
  - URTICARIA [None]
